FAERS Safety Report 18063971 (Version 1)
Quarter: 2020Q3

REPORT INFORMATION
  Report Type: Other
  Country: SI (occurrence: SI)
  Receive Date: 20200724
  Receipt Date: 20200724
  Transmission Date: 20201103
  Serious: Yes (Hospitalization, Disabling)
  Sender: FDA-Public Use
  Company Number: SI-CELLTRION INC.-2020SI024529

PATIENT

DRUGS (7)
  1. PLIVIT D3 [Concomitant]
     Active Substance: CHOLECALCIFEROL
     Dosage: 10 DROP, QD
  2. PRIMOTREN [Concomitant]
     Active Substance: SULFAMETHOXAZOLE\TRIMETHOPRIM
     Dosage: 1 TBL IN THE EVENINGS
     Dates: end: 20200515
  3. SKOPRYL HCT [Concomitant]
  4. BLITZIMA [Suspect]
     Active Substance: RITUXIMAB
     Indication: NEPHROTIC SYNDROME
  5. LESCOL XL [Concomitant]
     Active Substance: FLUVASTATIN SODIUM
     Dosage: 80 MG
  6. EZOLETA [Concomitant]
     Dosage: 10 MG
  7. BLITZIMA [Suspect]
     Active Substance: RITUXIMAB
     Indication: GLOMERULONEPHRITIS
     Dosage: 1000 MG, BIOLOGICAL DRUG
     Route: 042
     Dates: start: 20200515, end: 20200529

REACTIONS (2)
  - Off label use [Unknown]
  - Acute kidney injury [Recovered/Resolved with Sequelae]

NARRATIVE: CASE EVENT DATE: 20200530
